FAERS Safety Report 14999194 (Version 2)
Quarter: 2018Q3

REPORT INFORMATION
  Report Type: Spontaneous
  Country: SK (occurrence: SK)
  Receive Date: 20180612
  Receipt Date: 20180720
  Transmission Date: 20181010
  Serious: Yes (Death, Hospitalization, Other)
  Sender: FDA-Public Use
  Company Number: SK-B.I. PHARMACEUTICALS,INC./RIDGEFIELD-2018-BI-030386

PATIENT
  Age: 86 Year
  Sex: Male

DRUGS (1)
  1. PRAXBIND [Suspect]
     Active Substance: IDARUCIZUMAB
     Indication: PROCOAGULANT THERAPY
     Route: 065
     Dates: start: 20180607, end: 20180607

REACTIONS (1)
  - Cardiopulmonary failure [Fatal]

NARRATIVE: CASE EVENT DATE: 20180607
